FAERS Safety Report 7901874-X (Version None)
Quarter: 2011Q4

REPORT INFORMATION
  Report Type: 
  Country: None (occurrence: None)
  Receive Date: 20111108
  Receipt Date: 20111104
  Transmission Date: 20120403
  Serious: Yes (Hospitalization)
  Sender: FDA-Public Use
  Company Number: US-MERCK-1107USA01064

PATIENT
  Age: 69 Year
  Sex: Female
  Weight: 75 kg

DRUGS (4)
  1. ZOCOR [Concomitant]
     Indication: BLOOD CHOLESTEROL INCREASED
     Route: 048
     Dates: start: 19880101
  2. FOSAMAX [Suspect]
     Route: 048
     Dates: start: 20080101
  3. FOSAMAX [Suspect]
     Indication: OSTEOPOROSIS
     Route: 048
     Dates: start: 20010601, end: 20080601
  4. VITAMINS (UNSPECIFIED) [Concomitant]
     Route: 065
     Dates: start: 19950101

REACTIONS (12)
  - FEMUR FRACTURE [None]
  - OCCULT BLOOD POSITIVE [None]
  - DEEP VEIN THROMBOSIS [None]
  - ROTATOR CUFF SYNDROME [None]
  - OEDEMA PERIPHERAL [None]
  - OSTEOPENIA [None]
  - OSTEOARTHRITIS [None]
  - MENISCUS LESION [None]
  - BREAST DISORDER [None]
  - THROMBOSIS [None]
  - SYNOVIAL CYST [None]
  - ANAEMIA POSTOPERATIVE [None]
